FAERS Safety Report 9746540 (Version 2)
Quarter: 2013Q4

REPORT INFORMATION
  Report Type: Report from Study
  Country: US (occurrence: US)
  Receive Date: 20131211
  Receipt Date: 20131226
  Transmission Date: 20140711
  Serious: Yes (Death)
  Sender: FDA-Public Use
  Company Number: PHEH2013US025533

PATIENT
  Sex: 0

DRUGS (1)
  1. EXELON PATCH [Suspect]
     Dosage: UNK UKN, UNK
     Route: 062

REACTIONS (1)
  - Cerebrovascular accident [Fatal]
